FAERS Safety Report 8993515 (Version 1)
Quarter: 2013Q1

REPORT INFORMATION
  Report Type: Spontaneous
  Country: ES (occurrence: ES)
  Receive Date: 20130102
  Receipt Date: 20130102
  Transmission Date: 20140127
  Serious: Yes (Other)
  Sender: FDA-Public Use
  Company Number: ES-ABBOTT-12P-144-1028992-00

PATIENT
  Age: 60 Year
  Sex: Female

DRUGS (1)
  1. HUMIRA [Suspect]
     Indication: CROHN^S DISEASE
     Dates: start: 20120917, end: 20121121

REACTIONS (3)
  - Erythema [Recovering/Resolving]
  - Scab [Recovering/Resolving]
  - Pain of skin [Recovering/Resolving]
